FAERS Safety Report 7893650-1 (Version None)
Quarter: 2011Q4

REPORT INFORMATION
  Report Type: 
  Country: None (occurrence: None)
  Receive Date: 20111104
  Receipt Date: 20111025
  Transmission Date: 20120403
  Serious: Yes (Hospitalization, Other)
  Sender: FDA-Public Use
  Company Number: BR-GLAXOSMITHKLINE-B0760110A

PATIENT
  Sex: Female
  Weight: 70 kg

DRUGS (8)
  1. LEVOTHYROXINE SODIUM [Concomitant]
     Indication: THYROID DISORDER
     Dosage: 88MG PER DAY
     Route: 048
  2. CLONAZEPAM [Concomitant]
     Indication: SEDATION
     Dosage: 2TAB PER DAY
     Route: 048
  3. EICOSAPEN [Concomitant]
     Indication: BALANCE DISORDER
     Dosage: 1CAP PER DAY
     Route: 048
  4. PROPAFENONE HCL [Suspect]
     Indication: PRODUCT USED FOR UNKNOWN INDICATION
     Dosage: 300MG THREE TIMES PER DAY
     Route: 048
  5. UNKNOWN MEDICATION [Concomitant]
     Indication: DIABETES MELLITUS
     Dosage: 50MG PER DAY
     Route: 048
  6. OMEPRAZOLE [Concomitant]
     Indication: GASTRITIS
     Dosage: 20MG PER DAY
     Route: 048
  7. UNKNOWN MEDICATION [Concomitant]
     Indication: BLOOD DISORDER
     Dosage: 1TAB PER DAY
     Route: 048
     Dates: start: 20110101
  8. METFORMIN HCL [Concomitant]
     Indication: DIABETES MELLITUS
     Dosage: 850MG PER DAY
     Route: 048

REACTIONS (3)
  - ANAL FISSURE [None]
  - DIABETES MELLITUS [None]
  - HYPOTENSION [None]
